FAERS Safety Report 9027728 (Version 2)
Quarter: 2013Q2

REPORT INFORMATION
  Report Type: Spontaneous
  Country: US (occurrence: US)
  Receive Date: 20130123
  Receipt Date: 20130425
  Transmission Date: 20140414
  Serious: No
  Sender: FDA-Public Use
  Company Number: US-009507513-1301USA010280

PATIENT
  Age: 58 Year
  Sex: Male
  Weight: 90.7 kg

DRUGS (8)
  1. VICTRELIS [Suspect]
     Indication: HEPATITIS C
     Dosage: 800 MG, TID
     Route: 048
     Dates: start: 20121120
  2. RIBASPHERE [Suspect]
     Indication: HEPATITIS C
     Dosage: 6 DF, 3 TABLETS IN THE MORNING AND 3 TABLETS IN THE EVENING
  3. PEGASYS [Suspect]
     Indication: HEPATITIS C
     Dosage: 135 MICROGRAM/0.5 ML, EVERY WEEK
     Route: 058
  4. LOSARTAN POTASSIUM [Concomitant]
     Dosage: UNK UNK, QD
     Route: 048
  5. METOPROLOL TARTRATE [Concomitant]
     Dosage: UNK, BID
     Route: 048
  6. HYDROCHLOROTHIAZIDE [Concomitant]
     Dosage: UNK, QD
     Route: 048
  7. RANITIDINE [Concomitant]
     Dosage: UNK, QD
     Route: 048
  8. AUGMENTIN [Suspect]

REACTIONS (1)
  - Rash generalised [Not Recovered/Not Resolved]
